FAERS Safety Report 8575911-6 (Version None)
Quarter: 2012Q2

REPORT INFORMATION
  Report Type: 
  Country: None (occurrence: None)
  Receive Date: 20120423
  Receipt Date: 20100402
  Transmission Date: 20120825
  Serious: Yes (Other)
  Sender: FDA-Public Use
  Company Number: PHEH2010US01844

PATIENT
  Age: 75 Year
  Sex: Male
  Weight: 95.2 kg

DRUGS (1)
  1. EXJADE [Suspect]
     Dosage: 2000 MG,DAILY ORAL
     Route: 048
     Dates: start: 20091230, end: 20100122

REACTIONS (2)
  - GASTROINTESTINAL ULCER HAEMORRHAGE [None]
  - FAECES DISCOLOURED [None]
